FAERS Safety Report 12296893 (Version 1)
Quarter: 2016Q2

REPORT INFORMATION
  Report Type: Report from Study
  Country: KR (occurrence: KR)
  Receive Date: 20160422
  Receipt Date: 20160422
  Transmission Date: 20160815
  Serious: No
  Sender: FDA-Public Use
  Company Number: PHHY2016KR053495

PATIENT
  Age: 19 Year
  Sex: Male

DRUGS (37)
  1. EPINEPHRINE. [Concomitant]
     Active Substance: EPINEPHRINE
     Indication: TOOTH DISORDER
     Dosage: 1 MG, UNK
     Route: 042
     Dates: start: 20151120, end: 20151120
  2. FENTANYL CITRATE. [Concomitant]
     Active Substance: FENTANYL CITRATE
     Indication: TOOTH DISORDER
     Dosage: 50 UG, UNK
     Route: 042
     Dates: start: 20151120, end: 20151120
  3. KETOROLAC [Concomitant]
     Active Substance: KETOROLAC\KETOROLAC TROMETHAMINE
     Indication: TOOTH DISORDER
     Dosage: 30 MG, UNK
     Route: 042
     Dates: start: 20151120, end: 20151120
  4. ZALTOPROFEN [Concomitant]
     Active Substance: ZALTOPROFEN
     Indication: TOOTH EXTRACTION
  5. WATER FOR INJECTION [Concomitant]
     Active Substance: WATER
     Indication: TOOTH EXTRACTION
  6. GLYCOPYRRONIUM [Concomitant]
     Active Substance: GLYCOPYRRONIUM
     Indication: TOOTH DISORDER
     Dosage: 0.4 MG, UNK
     Route: 042
     Dates: start: 20151120, end: 20151120
  7. POTASSIUM CHLORIDE. [Concomitant]
     Active Substance: POTASSIUM CHLORIDE
     Indication: TOOTH EXTRACTION
  8. PROPOFOL. [Concomitant]
     Active Substance: PROPOFOL
     Indication: TOOTH DISORDER
     Dosage: 110 MG, UNK
     Route: 042
     Dates: start: 20151120, end: 20151120
  9. PROPOFOL. [Concomitant]
     Active Substance: PROPOFOL
     Indication: TOOTH EXTRACTION
  10. RAMOSETRON [Concomitant]
     Active Substance: RAMOSETRON HYDROCHLORIDE
     Indication: TOOTH DISORDER
     Dosage: 0.3 MG, UNK
     Route: 042
     Dates: start: 20151120, end: 20151120
  11. ZALTOPROFEN [Concomitant]
     Active Substance: ZALTOPROFEN
     Indication: TOOTH DISORDER
     Dosage: 240 MG, UNK
     Route: 048
     Dates: start: 20151120, end: 20151124
  12. TASIGNA [Suspect]
     Active Substance: NILOTINIB
     Indication: CHRONIC MYELOID LEUKAEMIA
     Dosage: 600 MG, QD
     Route: 048
     Dates: start: 20150916
  13. AMOXICILLIN AND CLAVULANATE POTASSIUM [Concomitant]
     Active Substance: AMOXICILLIN\CLAVULANATE POTASSIUM
     Indication: TOOTH DISORDER
     Dosage: 1125 MG, UNK
     Route: 048
     Dates: start: 20151120, end: 20151124
  14. REMIFENTANIL [Concomitant]
     Active Substance: REMIFENTANIL
     Indication: TOOTH EXTRACTION
  15. TEPRENONE [Concomitant]
     Active Substance: TEPRENONE
     Indication: TOOTH EXTRACTION
  16. AMOXICILLIN AND CLAVULANATE POTASSIUM [Concomitant]
     Active Substance: AMOXICILLIN\CLAVULANATE POTASSIUM
     Indication: TOOTH EXTRACTION
  17. DICLOFENAC [Concomitant]
     Active Substance: DICLOFENAC
     Indication: TOOTH DISORDER
     Dosage: 75 MG, UNK
     Route: 048
     Dates: start: 20151103, end: 20151103
  18. GLYCOPYRRONIUM [Concomitant]
     Active Substance: GLYCOPYRRONIUM
     Indication: TOOTH EXTRACTION
  19. WATER FOR INJECTION [Concomitant]
     Active Substance: WATER
     Indication: TOOTH DISORDER
     Dosage: 20 ML, UNK
     Route: 042
     Dates: start: 20151120, end: 20151120
  20. CEFUROXIME. [Concomitant]
     Active Substance: CEFUROXIME
     Indication: TOOTH DISORDER
     Dosage: 1.5 G, UNK
     Route: 042
     Dates: start: 20151103, end: 20151120
  21. DEXAMETHASONE. [Concomitant]
     Active Substance: DEXAMETHASONE
     Indication: TOOTH DISORDER
     Dosage: 10 MG, UNK
     Route: 042
     Dates: start: 20151120, end: 20151120
  22. PYRIDOSTIGMINE [Concomitant]
     Active Substance: PYRIDOSTIGMINE
     Indication: TOOTH DISORDER
     Dosage: 10 MG, UNK
     Route: 042
     Dates: start: 20151120, end: 20151120
  23. REMIFENTANIL [Concomitant]
     Active Substance: REMIFENTANIL
     Indication: TOOTH DISORDER
     Dosage: 1 MG, UNK
     Route: 042
     Dates: start: 20151120, end: 20151120
  24. SODIUM CHLORIDE. [Concomitant]
     Active Substance: SODIUM CHLORIDE
     Indication: TOOTH EXTRACTION
  25. KETOROLAC [Concomitant]
     Active Substance: KETOROLAC\KETOROLAC TROMETHAMINE
     Indication: TOOTH EXTRACTION
  26. OXYTETRACYCLINE [Concomitant]
     Active Substance: OXYTETRACYCLINE
     Indication: TOOTH EXTRACTION
  27. ROCURONIUM [Concomitant]
     Active Substance: ROCURONIUM BROMIDE
     Indication: TOOTH DISORDER
     Dosage: 50 MG, UNK
     Route: 042
     Dates: start: 20151120, end: 20151120
  28. SODIUM CHLORIDE. [Concomitant]
     Active Substance: SODIUM CHLORIDE
     Indication: TOOTH DISORDER
     Dosage: 1 L, UNK
     Route: 042
     Dates: start: 20151120, end: 20151120
  29. FENTANYL CITRATE. [Concomitant]
     Active Substance: FENTANYL CITRATE
     Indication: TOOTH EXTRACTION
  30. OXYTETRACYCLINE [Concomitant]
     Active Substance: OXYTETRACYCLINE
     Indication: TOOTH DISORDER
     Dosage: 1.05 G, UNK
     Route: 061
     Dates: start: 20151120, end: 20151120
  31. POTASSIUM CHLORIDE. [Concomitant]
     Active Substance: POTASSIUM CHLORIDE
     Indication: TOOTH DISORDER
     Dosage: 1000 ML, UNK
     Route: 042
     Dates: start: 20151120, end: 20151120
  32. PYRIDOSTIGMINE [Concomitant]
     Active Substance: PYRIDOSTIGMINE
     Indication: TOOTH EXTRACTION
  33. DEXAMETHASONE. [Concomitant]
     Active Substance: DEXAMETHASONE
     Indication: TOOTH EXTRACTION
  34. EPINEPHRINE. [Concomitant]
     Active Substance: EPINEPHRINE
     Indication: TOOTH EXTRACTION
  35. RAMOSETRON [Concomitant]
     Active Substance: RAMOSETRON HYDROCHLORIDE
     Indication: TOOTH EXTRACTION
  36. ROCURONIUM [Concomitant]
     Active Substance: ROCURONIUM BROMIDE
     Indication: TOOTH EXTRACTION
  37. TEPRENONE [Concomitant]
     Active Substance: TEPRENONE
     Indication: TOOTH DISORDER
     Dosage: 150 MG, UNK
     Route: 048
     Dates: start: 20151120, end: 20151124

REACTIONS (4)
  - Alanine aminotransferase increased [Recovered/Resolved]
  - Constipation [Recovered/Resolved]
  - Hyperbilirubinaemia [Not Recovered/Not Resolved]
  - Aspartate aminotransferase increased [Recovered/Resolved]

NARRATIVE: CASE EVENT DATE: 20151105
